FAERS Safety Report 6541716-0 (Version None)
Quarter: 2010Q1

REPORT INFORMATION
  Report Type: 
  Country: None (occurrence: None)
  Receive Date: 20100119
  Receipt Date: 20100107
  Transmission Date: 20100710
  Serious: Yes (Other)
  Sender: FDA-Public Use
  Company Number: US-AMGEN-US380471

PATIENT
  Sex: Male
  Weight: 141.2 kg

DRUGS (13)
  1. NPLATE [Suspect]
     Indication: IDIOPATHIC THROMBOCYTOPENIC PURPURA
     Dates: start: 20090127
  2. BENICAR [Concomitant]
  3. CELEBREX [Concomitant]
  4. FUROSEMIDE [Concomitant]
  5. GLIPIZIDE [Concomitant]
  6. GLUCOPHAGE [Concomitant]
  7. VERAPAMIL [Concomitant]
  8. TRIAMTERENE AND HYDROCHLOROTHIAZIDE [Concomitant]
  9. TERAZOSIN HCL [Concomitant]
  10. METHADONE [Concomitant]
  11. VITAMIN D [Concomitant]
  12. VITAMIN B-12 [Concomitant]
  13. FOLIC ACID [Concomitant]

REACTIONS (7)
  - ABDOMINAL DISCOMFORT [None]
  - HYPOAESTHESIA [None]
  - LYMPHOPENIA [None]
  - MUSCULAR WEAKNESS [None]
  - PLATELET COUNT DECREASED [None]
  - RED BLOOD CELL ABNORMALITY [None]
  - RED CELL DISTRIBUTION WIDTH INCREASED [None]
